FAERS Safety Report 9575792 (Version 1)
Quarter: 2013Q4

REPORT INFORMATION
  Report Type: Spontaneous
  Country: US (occurrence: US)
  Receive Date: 20131001
  Receipt Date: 20131001
  Transmission Date: 20140711
  Serious: No
  Sender: FDA-Public Use
  Company Number: US-AMGEN-USASP2013000037

PATIENT
  Age: 49 Year
  Sex: Male
  Weight: 81.63 kg

DRUGS (9)
  1. ENBREL [Suspect]
     Indication: PRODUCT USED FOR UNKNOWN INDICATION
     Dosage: 50 MG, WEEKLY
     Route: 058
  2. HYDROCODONE/APAP [Concomitant]
     Dosage: 5-300 MG, UNK
  3. CYCLOBENZAPRINE [Concomitant]
     Dosage: 5 MG, UNK
  4. LOSARTAN POTASSIUM [Concomitant]
     Dosage: 25 MG, UNK
  5. GABAPENTIN [Concomitant]
     Dosage: 100 MG, UNK
  6. ALPRAZOLAM [Concomitant]
     Dosage: 1 MG, UNK
  7. LISINOPRIL [Concomitant]
     Dosage: 20 MG, UNK
  8. INDOMETHACIN                       /00003801/ [Concomitant]
     Dosage: 75 MG CR, UNK
  9. NAPROXEN [Concomitant]
     Dosage: 250 MG, UNK

REACTIONS (2)
  - Pain [Unknown]
  - Lethargy [Unknown]
